FAERS Safety Report 17098524 (Version 1)
Quarter: 2019Q4

REPORT INFORMATION
  Report Type: Spontaneous
  Country: CN (occurrence: CN)
  Receive Date: 20191202
  Receipt Date: 20191202
  Transmission Date: 20200122
  Serious: Yes (Hospitalization)
  Sender: FDA-Public Use
  Company Number: CN-PFIZER INC-2019514120

PATIENT
  Age: 77 Year
  Sex: Female

DRUGS (2)
  1. VIAGRA [Concomitant]
     Active Substance: SILDENAFIL CITRATE
     Indication: PULMONARY HYPERTENSION
     Dosage: 0.025 G, 2X/DAY
     Route: 048
     Dates: start: 20191103, end: 20191114
  2. DIFLUCAN [Suspect]
     Active Substance: FLUCONAZOLE
     Indication: ANTI-INFECTIVE THERAPY
     Dosage: 100 MG, 1X/DAY
     Route: 048
     Dates: start: 20191108, end: 20191111

REACTIONS (3)
  - Asthma [Unknown]
  - Heart rate decreased [Recovering/Resolving]
  - Chest discomfort [Unknown]

NARRATIVE: CASE EVENT DATE: 20191110
